FAERS Safety Report 17296804 (Version 20)
Quarter: 2021Q2

REPORT INFORMATION
  Report Type: Report from Study
  Country: None (occurrence: BE)
  Receive Date: 20200122
  Receipt Date: 20210408
  Transmission Date: 20210716
  Serious: Yes (Hospitalization)
  Sender: FDA-Public Use
  Company Number: BE-ABBVIE-19K-013-2871118-00

PATIENT
  Age: 62 Year
  Sex: Male
  Weight: 85 kg

DRUGS (23)
  1. DUODOPA [Suspect]
     Active Substance: CARBIDOPA\LEVODOPA
     Indication: PARKINSON^S DISEASE
     Dosage: MD=3ML, CD=1.4ML/HR DURING 16HRS, ED=1.2ML
     Route: 050
     Dates: start: 20180305, end: 20180315
  2. DUODOPA [Suspect]
     Active Substance: CARBIDOPA\LEVODOPA
     Dosage: DOSES CONTINUOUSLY MONITORED AND ADAPTED
     Route: 050
     Dates: start: 20180315, end: 20200102
  3. DUODOPA [Suspect]
     Active Substance: CARBIDOPA\LEVODOPA
     Dosage: MD=11ML, CD=3.2ML/HR DURING 16HRS, ED=2ML
     Route: 050
     Dates: start: 20200121, end: 20200203
  4. DUODOPA [Suspect]
     Active Substance: CARBIDOPA\LEVODOPA
     Dosage: MD=11.5 ML, CD= 2.6 ML/HR DURING 16HRS, ED=2.5 ML
     Route: 050
     Dates: start: 20210402
  5. NOBITEN [Concomitant]
     Active Substance: NEBIVOLOL
     Indication: PRODUCT USED FOR UNKNOWN INDICATION
  6. STALEVO 150 [Concomitant]
     Indication: PARKINSON^S DISEASE
     Dosage: FORM STRENGTH: 150MG/37.5MG/200MG; RESCUE MEDICATION
  7. XADAGO [Concomitant]
     Active Substance: SAFINAMIDE MESYLATE
     Indication: PARKINSON^S DISEASE
     Dosage: PRIOR TO DUODOPA THERAPY
     Route: 048
  8. STALEVO 100 [Concomitant]
     Dosage: FORM STRENGTH: 100MG/25MG/200MG; RESCUE MEDICATION?AFTER START DUODOPA THERAPY
  9. XADAGO [Concomitant]
     Active Substance: SAFINAMIDE MESYLATE
     Dosage: RESCUE MEDICATION, AFTER START DUODOPA THERAPY
  10. DUODOPA [Suspect]
     Active Substance: CARBIDOPA\LEVODOPA
     Dosage: MD= 11.5 ML, CD= 2.6 ML/HR DURING 16HRS, ED= 2.2 ML
     Route: 050
     Dates: start: 20201207, end: 20210402
  11. DUODOPA [Suspect]
     Active Substance: CARBIDOPA\LEVODOPA
     Dosage: MD=11ML, CD=3ML/HR DURING 16HRS, ED=2ML
     Route: 050
     Dates: start: 20200203, end: 20200412
  12. DUODOPA [Suspect]
     Active Substance: CARBIDOPA\LEVODOPA
     Dosage: MD=11ML, CD=3ML/HR DURING 16HRS, ED=2.2ML
     Route: 050
     Dates: start: 20200412, end: 20200522
  13. DUODOPA [Suspect]
     Active Substance: CARBIDOPA\LEVODOPA
     Dosage: MD=11.5ML, CD=2.9ML/HR DURING 16HRS, ED=2.2ML
     Route: 050
     Dates: start: 20200604, end: 2020
  14. IMOVANE [Concomitant]
     Active Substance: ZOPICLONE
     Indication: PRODUCT USED FOR UNKNOWN INDICATION
  15. SIPRALEXA [Concomitant]
     Active Substance: ESCITALOPRAM OXALATE
     Indication: PRODUCT USED FOR UNKNOWN INDICATION
  16. EFEXOR?EXEL [Concomitant]
     Active Substance: VENLAFAXINE HYDROCHLORIDE
     Indication: PRODUCT USED FOR UNKNOWN INDICATION
  17. DUODOPA [Suspect]
     Active Substance: CARBIDOPA\LEVODOPA
     Dosage: MD=14ML, CD=3ML/HR DURING 16HRS, ED=1.5ML
     Route: 050
     Dates: start: 20200113, end: 20200116
  18. STALEVO 100 [Concomitant]
     Indication: PARKINSON^S DISEASE
     Dosage: FORM STRENGTH: 100MG/25MG/200MG?PRIOR TO DUODOPA THERAPY
     Route: 048
  19. DUODOPA [Suspect]
     Active Substance: CARBIDOPA\LEVODOPA
     Dosage: MD=12ML, CD=3ML/HR DURING 16HRS, ED=1.5ML
     Route: 050
     Dates: start: 20200102, end: 20200113
  20. DUODOPA [Suspect]
     Active Substance: CARBIDOPA\LEVODOPA
     Dosage: MD=11ML, CD=3.2ML/HR DURING 16HRS, ED=1.5ML
     Route: 050
     Dates: start: 20200116, end: 20200121
  21. DUODOPA [Suspect]
     Active Substance: CARBIDOPA\LEVODOPA
     Dosage: MD=11.5ML, CD=3.2ML/HR DURING 16HRS, ED=2.2ML
     Route: 050
     Dates: start: 20200522, end: 20200604
  22. DUODOPA [Suspect]
     Active Substance: CARBIDOPA\LEVODOPA
     Dosage: MD=11.5ML, CD=2.6ML/HR DURING 16HRS, ED=2.2ML
     Route: 050
     Dates: start: 20200917, end: 20201026
  23. DUODOPA [Suspect]
     Active Substance: CARBIDOPA\LEVODOPA
     Dosage: MD= 11.5 ML, CD= 2.8 ML/HR DURING 16HRS, ED= 2.2 ML
     Route: 050
     Dates: start: 20201026, end: 20201207

REACTIONS (19)
  - Procedural pain [Not Recovered/Not Resolved]
  - Stoma site hypergranulation [Recovered/Resolved]
  - Hernia [Not Recovered/Not Resolved]
  - Gait inability [Unknown]
  - On and off phenomenon [Not Recovered/Not Resolved]
  - Dyskinesia [Not Recovered/Not Resolved]
  - Nausea [Unknown]
  - Hypertension [Not Recovered/Not Resolved]
  - Stoma site infection [Recovering/Resolving]
  - Restless legs syndrome [Unknown]
  - Drug ineffective [Unknown]
  - Stoma site erythema [Not Recovered/Not Resolved]
  - Freezing phenomenon [Recovering/Resolving]
  - Extra dose administered [Unknown]
  - Staphylococcal infection [Unknown]
  - Asthenia [Recovered/Resolved]
  - Gait disturbance [Not Recovered/Not Resolved]
  - Stoma site discharge [Recovering/Resolving]
  - Device leakage [Recovered/Resolved]

NARRATIVE: CASE EVENT DATE: 20200127
